FAERS Safety Report 17983159 (Version 6)
Quarter: 2021Q3

REPORT INFORMATION
  Report Type: Spontaneous
  Country: US (occurrence: US)
  Receive Date: 20200706
  Receipt Date: 20210804
  Transmission Date: 20211014
  Serious: Yes (Other)
  Sender: FDA-Public Use
  Company Number: US-PFIZER INC-2020256523

PATIENT
  Age: 62 Year
  Sex: Female

DRUGS (2)
  1. XELJANZ [Suspect]
     Active Substance: TOFACITINIB CITRATE
     Indication: COLITIS ULCERATIVE
     Dosage: 10 MG, 2X/DAY
     Route: 048
     Dates: start: 2018
  2. XELJANZ [Suspect]
     Active Substance: TOFACITINIB CITRATE
     Indication: RHEUMATOID ARTHRITIS
     Dosage: 10 MG, 1X/DAY
     Dates: end: 202104

REACTIONS (11)
  - Rheumatoid arthritis [Unknown]
  - Colitis ulcerative [Unknown]
  - Dehydration [Unknown]
  - Product dose omission issue [Unknown]
  - Coeliac disease [Unknown]
  - Sleep disorder [Unknown]
  - Intentional product use issue [Unknown]
  - Muscle spasms [Unknown]
  - Eating disorder [Unknown]
  - Gastrointestinal infection [Recovered/Resolved]
  - Condition aggravated [Not Recovered/Not Resolved]

NARRATIVE: CASE EVENT DATE: 202006
